APPROVED DRUG PRODUCT: ZOLPIDEM TARTRATE
Active Ingredient: ZOLPIDEM TARTRATE
Strength: 12.5MG
Dosage Form/Route: TABLET, EXTENDED RELEASE;ORAL
Application: A090153 | Product #002
Applicant: ACTAVIS LABORATORIES FL INC
Approved: Mar 25, 2013 | RLD: No | RS: No | Type: DISCN